FAERS Safety Report 7113585-1 (Version None)
Quarter: 2010Q4

REPORT INFORMATION
  Report Type: 
  Country: None (occurrence: None)
  Receive Date: 20101119
  Receipt Date: 20101109
  Transmission Date: 20110411
  Serious: Yes (Other)
  Sender: FDA-Public Use
  Company Number: AU-ROCHE-740395

PATIENT
  Sex: Female
  Weight: 60 kg

DRUGS (7)
  1. TRASTUZUMAB [Suspect]
     Indication: BREAST CANCER METASTATIC
     Dosage: ON DAY 1, 8 AND 15, SOLUTION FOR INJECTION
     Route: 042
     Dates: start: 20040908
  2. TRASTUZUMAB [Suspect]
     Dosage: DOSE: 2 MG/KG
     Route: 042
     Dates: end: 20050104
  3. CAPECITABINE [Suspect]
     Indication: BREAST CANCER METASTATIC
     Dosage: FROM D1 TO D14, DOSE: 2000MG/M2, SOFT CAPSULE
     Route: 048
     Dates: start: 20040908, end: 20050104
  4. NAVELBINE [Suspect]
     Indication: BREAST CANCER METASTATIC
     Dosage: CYCLE 1
     Route: 048
     Dates: start: 20040908
  5. NAVELBINE [Suspect]
     Dosage: FORM: SOFT CAPSULE, DOSE 80MG/M2
     Route: 048
     Dates: end: 20041230
  6. BONEFOS [Concomitant]
     Route: 048
  7. PREFRIN [Concomitant]

REACTIONS (6)
  - AORTIC VALVE DISEASE [None]
  - CARDIOMEGALY [None]
  - HYPOTENSION [None]
  - LUNG INFECTION [None]
  - MYOCARDITIS [None]
  - VENTRICULAR DYSFUNCTION [None]
